FAERS Safety Report 9439724 (Version 1)
Quarter: 2013Q3

REPORT INFORMATION
  Report Type: Spontaneous
  Country: US (occurrence: None)
  Receive Date: 20130802
  Receipt Date: 20130802
  Transmission Date: 20140515
  Serious: Yes (Disabling)
  Sender: FDA-Public Use
  Company Number: None

PATIENT
  Age: 25 Year
  Sex: Male
  Weight: 72.58 kg

DRUGS (1)
  1. MEFLOQUINE HCL [Suspect]
     Indication: MALARIA PROPHYLAXIS
     Dosage: 1 TAB WEEKLY PO
     Route: 048
     Dates: start: 20130725, end: 20130725

REACTIONS (6)
  - Nausea [None]
  - Vomiting [None]
  - Hypoaesthesia [None]
  - Paraesthesia [None]
  - Vomiting [None]
  - Neurological symptom [None]
